FAERS Safety Report 22302246 (Version 2)
Quarter: 2023Q2

REPORT INFORMATION
  Report Type: Spontaneous
  Country: US (occurrence: US)
  Receive Date: 20230510
  Receipt Date: 20230626
  Transmission Date: 20230721
  Serious: Yes (Hospitalization, Other)
  Sender: FDA-Public Use
  Company Number: US-SA-SAC20230509000196

PATIENT
  Age: 47 Year
  Sex: Female

DRUGS (1)
  1. DUPIXENT [Suspect]
     Active Substance: DUPILUMAB
     Indication: Dermatitis atopic
     Dosage: 300 MG, QOW
     Route: 058
     Dates: start: 202003

REACTIONS (6)
  - Loss of consciousness [Unknown]
  - Abdominal discomfort [Unknown]
  - White blood cell count increased [Unknown]
  - Hypertension [Unknown]
  - Heart rate increased [Unknown]
  - Therapeutic response decreased [Unknown]
